FAERS Safety Report 23448595 (Version 2)
Quarter: 2024Q1

REPORT INFORMATION
  Report Type: Report from Study
  Country: US (occurrence: US)
  Receive Date: 20240127
  Receipt Date: 20240319
  Transmission Date: 20240410
  Serious: Yes (Death, Other)
  Sender: FDA-Public Use
  Company Number: US-TAKEDA-2023TUS123948

PATIENT
  Age: 74 Year
  Sex: Female
  Weight: 50 kg

DRUGS (2)
  1. FRUQUINTINIB [Suspect]
     Active Substance: FRUQUINTINIB
     Indication: Colon cancer
     Dosage: 5 MILLIGRAM
     Route: 048
     Dates: start: 20231218
  2. FRUQUINTINIB [Suspect]
     Active Substance: FRUQUINTINIB
     Dosage: 4 MILLIGRAM
     Route: 048

REACTIONS (5)
  - Death [Fatal]
  - Liver function test increased [Unknown]
  - Confusional state [Unknown]
  - Fatigue [Unknown]
  - Abdominal discomfort [Recovered/Resolved]

NARRATIVE: CASE EVENT DATE: 20240117
